FAERS Safety Report 4381895-7 (Version None)
Quarter: 2004Q2

REPORT INFORMATION
  Report Type: 
  Country: None (occurrence: None)
  Receive Date: 20040615
  Receipt Date: 20040519
  Transmission Date: 20050107
  Serious: No
  Sender: FDA-Public Use
  Company Number: 2004SE02866

PATIENT
  Age: 43 Year
  Sex: Male

DRUGS (3)
  1. ZESTORETIC [Suspect]
     Indication: HYPERTENSION
     Dosage: 1 DF DAILY PO
     Route: 048
     Dates: start: 20030912, end: 20031208
  2. CENTYL WITH POTASSIUM [Concomitant]
  3. CORODIL [Concomitant]

REACTIONS (2)
  - ANGIONEUROTIC OEDEMA [None]
  - OROPHARYNGEAL SWELLING [None]
